FAERS Safety Report 12579853 (Version 1)
Quarter: 2016Q3

REPORT INFORMATION
  Report Type: Report from Study
  Country: HU (occurrence: HU)
  Receive Date: 20160721
  Receipt Date: 20160721
  Transmission Date: 20161109
  Serious: Yes (Death)
  Sender: FDA-Public Use
  Company Number: PHHO2009HU017920

PATIENT
  Age: 54 Year
  Sex: Female
  Weight: 84 kg

DRUGS (11)
  1. OFATUMUMAB [Suspect]
     Active Substance: OFATUMUMAB
     Dosage: 700 MG, BID (700 MG X2)
     Route: 042
     Dates: start: 20080724
  2. FOLIC [Concomitant]
     Active Substance: FOLIC ACID
     Indication: PRODUCT USED FOR UNKNOWN INDICATION
     Dosage: 10 MG, QW
     Route: 065
  3. MELOXICAM. [Concomitant]
     Active Substance: MELOXICAM
     Indication: PRODUCT USED FOR UNKNOWN INDICATION
     Dosage: 15 MG, QD
     Route: 065
  4. OFATUMUMAB [Suspect]
     Active Substance: OFATUMUMAB
     Dosage: 700 MG, UNK
     Route: 042
     Dates: start: 20080221
  5. OFATUMUMAB [Suspect]
     Active Substance: OFATUMUMAB
     Dosage: 700 MG, BID (700 MG X2)
     Route: 042
     Dates: start: 20090317, end: 20090421
  6. OFATUMUMAB [Suspect]
     Active Substance: OFATUMUMAB
     Indication: RHEUMATOID ARTHRITIS
     Dosage: 700 MG,
     Route: 042
     Dates: start: 20080207
  7. OFATUMUMAB [Suspect]
     Active Substance: OFATUMUMAB
     Dosage: 700 MG, BID (700 MG X2)
     Route: 042
     Dates: start: 20090303
  8. METHOTREXATE. [Concomitant]
     Active Substance: METHOTREXATE
     Indication: PRODUCT USED FOR UNKNOWN INDICATION
     Dosage: 20 MG, QW
     Route: 065
     Dates: start: 2006
  9. FAMOTIDINE. [Concomitant]
     Active Substance: FAMOTIDINE
     Indication: PRODUCT USED FOR UNKNOWN INDICATION
     Dosage: 20 MG, QD
     Route: 065
  10. OFATUMUMAB [Suspect]
     Active Substance: OFATUMUMAB
     Dosage: 700 MG, BID (700 MG X2)
     Route: 042
     Dates: start: 20080806
  11. METHYLPREDNISOLONE. [Concomitant]
     Active Substance: METHYLPREDNISOLONE
     Indication: PRODUCT USED FOR UNKNOWN INDICATION
     Dosage: 2 MG, QD
     Route: 065

REACTIONS (2)
  - Hepatitis B [Fatal]
  - Jaundice [Fatal]

NARRATIVE: CASE EVENT DATE: 20090421
